FAERS Safety Report 5075495-3 (Version None)
Quarter: 2006Q3

REPORT INFORMATION
  Report Type: 
  Country: None (occurrence: None)
  Receive Date: 20060809
  Receipt Date: 20040818
  Transmission Date: 20061208
  Serious: Yes (Disabling)
  Sender: FDA-Public Use
  Company Number: US-ROCHE-378079

PATIENT
  Age: 34 Year
  Sex: Female
  Weight: 88.5 kg

DRUGS (1)
  1. ACCUTANE [Suspect]
     Indication: ACNE
     Route: 048
     Dates: start: 19930515, end: 19930615

REACTIONS (74)
  - ADRENAL INSUFFICIENCY [None]
  - AMENORRHOEA [None]
  - ANAEMIA [None]
  - ANXIETY [None]
  - BACK PAIN [None]
  - BLEPHARITIS [None]
  - BLOOD CHOLESTEROL INCREASED [None]
  - BLOOD CORTISOL DECREASED [None]
  - BLOOD TRIGLYCERIDES INCREASED [None]
  - BREAST CYST [None]
  - BREAST MASS [None]
  - BURNING SENSATION [None]
  - CAESAREAN SECTION [None]
  - CHRONIC FATIGUE SYNDROME [None]
  - CHRONIC OBSTRUCTIVE PULMONARY DISEASE [None]
  - COLITIS ULCERATIVE [None]
  - CONSTIPATION [None]
  - CONTUSION [None]
  - CYSTITIS [None]
  - DEPRESSION [None]
  - DISCOMFORT [None]
  - DRUG EXPOSURE DURING PREGNANCY [None]
  - DRY EYE [None]
  - DYSPEPSIA [None]
  - DYSPHAGIA [None]
  - EAR CONGESTION [None]
  - ELECTROCARDIOGRAM ABNORMAL [None]
  - EPSTEIN-BARR VIRUS INFECTION [None]
  - FACIAL PAIN [None]
  - FATIGUE [None]
  - FIBROCYSTIC BREAST DISEASE [None]
  - FLATULENCE [None]
  - FOOD INTOLERANCE [None]
  - FURUNCLE [None]
  - GASTROINTESTINAL CANDIDIASIS [None]
  - GASTROINTESTINAL DISORDER [None]
  - HERPES ZOSTER [None]
  - HORMONE LEVEL ABNORMAL [None]
  - HYPERCOAGULATION [None]
  - HYPERTENSION [None]
  - INFLAMMATORY BOWEL DISEASE [None]
  - INTESTINAL HAEMORRHAGE [None]
  - JOINT STIFFNESS [None]
  - LACERATION [None]
  - LACTOSE TOLERANCE TEST ABNORMAL [None]
  - LOW DENSITY LIPOPROTEIN INCREASED [None]
  - LYMPHADENITIS [None]
  - METAL POISONING [None]
  - MYALGIA [None]
  - NASAL CONGESTION [None]
  - NASOPHARYNGITIS [None]
  - OEDEMA PERIPHERAL [None]
  - OESOPHAGITIS [None]
  - ORAL PAIN [None]
  - OVARIAN CYST RUPTURED [None]
  - PAIN IN EXTREMITY [None]
  - PARAESTHESIA [None]
  - PHARYNGOLARYNGEAL PAIN [None]
  - PITTING OEDEMA [None]
  - PRURITUS [None]
  - PRURITUS GENERALISED [None]
  - RECTAL HAEMORRHAGE [None]
  - RHINITIS ALLERGIC [None]
  - SCAR [None]
  - SINUSITIS [None]
  - STRESS [None]
  - SUICIDAL IDEATION [None]
  - TACHYCARDIA [None]
  - TOOTH INFECTION [None]
  - TOOTHACHE [None]
  - UPPER RESPIRATORY TRACT INFECTION [None]
  - UTERINE LEIOMYOMA [None]
  - VAGINAL DISCHARGE [None]
  - VULVOVAGINAL MYCOTIC INFECTION [None]
